FAERS Safety Report 7726973-7 (Version None)
Quarter: 2011Q3

REPORT INFORMATION
  Report Type: 
  Country: None (occurrence: None)
  Receive Date: 20110902
  Receipt Date: 20110831
  Transmission Date: 20111222
  Serious: Yes (Hospitalization, Other)
  Sender: FDA-Public Use
  Company Number: BE-PFIZER INC-2011202649

PATIENT
  Age: 40 Year
  Sex: Male

DRUGS (6)
  1. OMEPRAZOLE [Concomitant]
     Dosage: 20 MG, 1X/DAY
     Route: 048
  2. SUTENT [Suspect]
     Dosage: 37.5 MG, 1X/DAY
     Route: 048
     Dates: start: 20110525
  3. LITICAN [Concomitant]
     Dosage: UNK
  4. OXYCONTIN [Concomitant]
     Indication: PAIN
     Dosage: 10 MG, 2X/DAY
     Route: 048
     Dates: start: 20100311
  5. MS CONTIN [Concomitant]
     Indication: PAIN
     Dosage: 10 MG, AS NEEDED
     Dates: start: 20110518, end: 20110705
  6. SUTENT [Suspect]
     Dosage: UNK
     Route: 048
     Dates: start: 20100710

REACTIONS (6)
  - PAIN [None]
  - VOMITING [None]
  - DECREASED APPETITE [None]
  - GENERAL PHYSICAL HEALTH DETERIORATION [None]
  - NAUSEA [None]
  - ASTHENIA [None]
